FAERS Safety Report 4497403-6 (Version None)
Quarter: 2004Q4

REPORT INFORMATION
  Report Type: 
  Country: None (occurrence: None)
  Receive Date: 20041104
  Receipt Date: 20041022
  Transmission Date: 20050328
  Serious: Yes (Hospitalization)
  Sender: FDA-Public Use
  Company Number: 2004082164

PATIENT
  Age: 78 Year
  Sex: Female
  Weight: 60 kg

DRUGS (4)
  1. NORVASC [Suspect]
     Indication: ESSENTIAL HYPERTENSION
     Dates: end: 20031120
  2. PERINDOPRIL (PERINDOPRIL) [Suspect]
     Indication: ESSENTIAL HYPERTENSION
     Dosage: 4 MG (4 MG, 1 IN 1 D)
     Dates: end: 20031120
  3. MELOXICAM (MELOXICAM) [Suspect]
     Indication: ILL-DEFINED DISORDER
     Dates: end: 20031125
  4. WARFARIN SODIUM [Suspect]
     Indication: ILL-DEFINED DISORDER
     Dates: end: 20031125

REACTIONS (7)
  - ABDOMINAL PAIN UPPER [None]
  - CHILLS [None]
  - HEADACHE [None]
  - LEUKOPENIA [None]
  - MALAISE [None]
  - THROMBOCYTOPENIA [None]
  - TRANSAMINASES INCREASED [None]
